FAERS Safety Report 5276424-X (Version None)
Quarter: 2007Q1

REPORT INFORMATION
  Report Type: 
  Country: None (occurrence: None)
  Receive Date: 20061213
  Receipt Date: 20030919
  Transmission Date: 20070707
  Serious: Yes (Hospitalization)
  Sender: FDA-Public Use
  Company Number: 2003UW11995

PATIENT
  Age: 80 Year
  Sex: Female

DRUGS (2)
  1. SEROQUEL [Suspect]
     Dosage: 50 MG HS PO
     Route: 048
     Dates: start: 20030101
  2. NAVANE [Concomitant]

REACTIONS (1)
  - SYNCOPE [None]
